FAERS Safety Report 14503843 (Version 1)
Quarter: 2018Q1

REPORT INFORMATION
  Report Type: Spontaneous
  Country: US (occurrence: US)
  Receive Date: 20180208
  Receipt Date: 20180208
  Transmission Date: 20180509
  Serious: No
  Sender: FDA-Public Use
  Company Number: US-JNJFOC-20180123285

PATIENT
  Sex: Male

DRUGS (8)
  1. ALLEGRA [Concomitant]
     Active Substance: FEXOFENADINE HYDROCHLORIDE
  2. ALIGN [Concomitant]
     Active Substance: BIFIDOBACTERIUM LONGUM SUBSP. INFANTIS
  3. MULTIVITAMINS [Concomitant]
     Active Substance: VITAMINS
  4. TERAZOSIN [Concomitant]
     Active Substance: TERAZOSIN\TERAZOSIN HYDROCHLORIDE
  5. NIFEDIPINE. [Concomitant]
     Active Substance: NIFEDIPINE
  6. ASPIRIN. [Concomitant]
     Active Substance: ASPIRIN
  7. ATENOLOL. [Concomitant]
     Active Substance: ATENOLOL
  8. IMBRUVICA [Suspect]
     Active Substance: IBRUTINIB
     Indication: EXTRANODAL MARGINAL ZONE B-CELL LYMPHOMA (MALT TYPE)
     Route: 048
     Dates: start: 20170509

REACTIONS (3)
  - Decreased appetite [Not Recovered/Not Resolved]
  - Malaise [Not Recovered/Not Resolved]
  - Weight decreased [Not Recovered/Not Resolved]
